FAERS Safety Report 4971852-1 (Version None)
Quarter: 2006Q2

REPORT INFORMATION
  Report Type: 
  Country: None (occurrence: None)
  Receive Date: 20060413
  Receipt Date: 20060404
  Transmission Date: 20061013
  Serious: Yes (Other)
  Sender: FDA-Public Use
  Company Number: GB-GLAXOSMITHKLINE-B0419657A

PATIENT
  Age: 41 Year
  Sex: Female
  Weight: 69.5 kg

DRUGS (2)
  1. NICOTINE [Suspect]
     Indication: EX-SMOKER
     Route: 062
     Dates: start: 20060313, end: 20060328
  2. BUPROPION HCL [Concomitant]
     Dates: start: 20060323

REACTIONS (1)
  - CHEST DISCOMFORT [None]
